FAERS Safety Report 22630014 (Version 10)
Quarter: 2025Q1

REPORT INFORMATION
  Report Type: Report from Study
  Country: AU (occurrence: AU)
  Receive Date: 20230622
  Receipt Date: 20250304
  Transmission Date: 20250409
  Serious: Yes (Hospitalization, Disabling, Other)
  Sender: TAKEDA
  Company Number: AU-TAKEDA-2023TUS060354

PATIENT
  Age: 64 Year
  Sex: Female

DRUGS (7)
  1. TEDUGLUTIDE [Suspect]
     Active Substance: TEDUGLUTIDE
     Indication: Short-bowel syndrome
     Dosage: 0.34 MILLILITER, QD
     Dates: start: 20230614, end: 20230721
  2. TEDUGLUTIDE [Suspect]
     Active Substance: TEDUGLUTIDE
     Dosage: 3.4 MILLIGRAM, QD
  3. TEDUGLUTIDE [Suspect]
     Active Substance: TEDUGLUTIDE
  4. TEDUGLUTIDE [Suspect]
     Active Substance: TEDUGLUTIDE
  5. METRONIDAZOLE [Suspect]
     Active Substance: METRONIDAZOLE
     Indication: Product used for unknown indication
  6. MORPHINE [Suspect]
     Active Substance: MORPHINE
     Indication: Product used for unknown indication
  7. MEPERIDINE [Suspect]
     Active Substance: MEPERIDINE
     Indication: Product used for unknown indication

REACTIONS (11)
  - Fistula discharge [Recovering/Resolving]
  - Gastrointestinal stoma output increased [Unknown]
  - Infection [Unknown]
  - Stoma site infection [Recovering/Resolving]
  - Osteoarthritis [Recovering/Resolving]
  - Vaginal discharge [Recovered/Resolved]
  - Sciatica [Not Recovered/Not Resolved]
  - Stoma site haemorrhage [Recovering/Resolving]
  - Food allergy [Unknown]
  - Drug hypersensitivity [Unknown]
  - Weight increased [Unknown]

NARRATIVE: CASE EVENT DATE: 20230615
